FAERS Safety Report 4964944-4 (Version None)
Quarter: 2006Q2

REPORT INFORMATION
  Report Type: 
  Country: None (occurrence: None)
  Receive Date: 20060403
  Receipt Date: 20060323
  Transmission Date: 20061013
  Serious: Yes (Hospitalization)
  Sender: FDA-Public Use
  Company Number: MEDI-0004289

PATIENT
  Age: 15 Month
  Sex: 0

DRUGS (3)
  1. SYNAGIS [Suspect]
     Indication: ANTIVIRAL PROPHYLAXIS
     Dosage: 135 MG, 1 IN 30 D, INTRAMUSCULAR; 130 MG, 1 IN 30 D, INTRAMUSCULAR; 140 MG, 1 IN 30 D, INTRAMUSCULAR
     Route: 030
     Dates: start: 20051103, end: 20051202
  2. SYNAGIS [Suspect]
     Indication: ANTIVIRAL PROPHYLAXIS
     Dosage: 135 MG, 1 IN 30 D, INTRAMUSCULAR; 130 MG, 1 IN 30 D, INTRAMUSCULAR; 140 MG, 1 IN 30 D, INTRAMUSCULAR
     Route: 030
     Dates: start: 20051103
  3. SYNAGIS [Suspect]
     Indication: ANTIVIRAL PROPHYLAXIS
     Dosage: 135 MG, 1 IN 30 D, INTRAMUSCULAR; 130 MG, 1 IN 30 D, INTRAMUSCULAR; 140 MG, 1 IN 30 D, INTRAMUSCULAR
     Route: 030
     Dates: start: 20051230

REACTIONS (1)
  - RESPIRATORY TRACT INFECTION VIRAL [None]
